FAERS Safety Report 5327823-9 (Version None)
Quarter: 2007Q2

REPORT INFORMATION
  Report Type: 
  Country: None (occurrence: None)
  Receive Date: 20070517
  Receipt Date: 20070509
  Transmission Date: 20071010
  Serious: Yes (Hospitalization)
  Sender: FDA-Public Use
  Company Number: DE-JNJFOC-20070501827

PATIENT
  Sex: Female
  Weight: 70 kg

DRUGS (3)
  1. TOPAMAX [Suspect]
     Indication: ACCIDENTAL EXPOSURE
     Route: 048
  2. LAMICTAL [Suspect]
     Indication: ACCIDENTAL EXPOSURE
     Route: 048
  3. VALPROIC ACID [Suspect]
     Indication: DRUG USE FOR UNKNOWN INDICATION
     Route: 048

REACTIONS (4)
  - ACCIDENTAL EXPOSURE [None]
  - DIZZINESS [None]
  - NYSTAGMUS [None]
  - VOMITING [None]
